FAERS Safety Report 18134882 (Version 1)
Quarter: 2020Q3

REPORT INFORMATION
  Report Type: Spontaneous
  Country: CN (occurrence: CN)
  Receive Date: 20200811
  Receipt Date: 20200811
  Transmission Date: 20201103
  Serious: Yes (Hospitalization)
  Sender: FDA-Public Use
  Company Number: CN-ELI_LILLY_AND_COMPANY-CN202008000472

PATIENT
  Sex: Male

DRUGS (5)
  1. HUMALOG MIX50/50 [Suspect]
     Active Substance: INSULIN LISPRO
     Dosage: 8 U, DAILY (NOON)
     Route: 058
     Dates: start: 202006
  2. HUMALOG MIX75/25 [Suspect]
     Active Substance: INSULIN LISPRO
     Indication: TYPE 2 DIABETES MELLITUS
     Dosage: 17 U, EACH MORNING
     Route: 058
     Dates: start: 2016
  3. HUMALOG MIX50/50 [Suspect]
     Active Substance: INSULIN LISPRO
     Dosage: 6 U, DAILY (NIGHT)
     Route: 058
     Dates: start: 202006
  4. HUMALOG MIX75/25 [Suspect]
     Active Substance: INSULIN LISPRO
     Dosage: 16 U, DAILY (NIGHT)
     Route: 058
     Dates: start: 2016
  5. HUMALOG MIX50/50 [Suspect]
     Active Substance: INSULIN LISPRO
     Indication: TYPE 2 DIABETES MELLITUS
     Dosage: 9 U, EACH MORNING
     Route: 058
     Dates: start: 202006

REACTIONS (2)
  - Drug ineffective [Unknown]
  - Blood glucose increased [Unknown]
